FAERS Safety Report 14096511 (Version 1)
Quarter: 2017Q4

REPORT INFORMATION
  Report Type: Spontaneous
  Country: CH (occurrence: CH)
  Receive Date: 20171017
  Receipt Date: 20171017
  Transmission Date: 20180321
  Serious: Yes (Hospitalization)
  Sender: FDA-Public Use
  Company Number: CH-ASTRAZENECA-2017SF04290

PATIENT
  Age: 24288 Day
  Sex: Female

DRUGS (7)
  1. TEMESTA EXPIDET [Suspect]
     Active Substance: LORAZEPAM
     Route: 048
     Dates: start: 20170814, end: 20170818
  2. TRITTICO [Suspect]
     Active Substance: TRAZODONE HYDROCHLORIDE
     Route: 048
     Dates: end: 20170818
  3. STILNOX [Suspect]
     Active Substance: ZOLPIDEM TARTRATE
     Route: 048
     Dates: start: 20170814, end: 20170818
  4. LETROZOLE. [Concomitant]
     Active Substance: LETROZOLE
     Route: 048
  5. SEROQUEL XR [Suspect]
     Active Substance: QUETIAPINE FUMARATE
     Route: 048
  6. NEURONTIN [Suspect]
     Active Substance: GABAPENTIN
     Route: 048
  7. CYMBALTA [Suspect]
     Active Substance: DULOXETINE HYDROCHLORIDE
     Route: 048

REACTIONS (4)
  - Disorientation [Recovering/Resolving]
  - Psychomotor skills impaired [Recovering/Resolving]
  - Incorrect dose administered [Recovered/Resolved]
  - Confusional state [Recovered/Resolved]

NARRATIVE: CASE EVENT DATE: 20170814
